FAERS Safety Report 8609692 (Version 2)
Quarter: 2014Q1

REPORT INFORMATION
  Report Type: Spontaneous
  Country: US (occurrence: None)
  Receive Date: 20120323
  Receipt Date: 20130305
  Transmission Date: 20141002
  Serious: Yes (Hospitalization, Other)
  Sender: FDA-Public Use
  Company Number: 163-21880-11121567

PATIENT
  Age: 68 Year
  Sex: Male
  Weight: 73.48 kg

DRUGS (23)
  1. REVLIMID [Suspect]
     Indication: PLASMA CELL MYELOMA
     Dosage: 25 MG, 1 IN 1 D, PO
     Route: 048
     Dates: start: 20111114
  2. LEVAQUIN (LEVOFLOXACIN) [Concomitant]
  3. ADENOCARD (ADENOSINE) [Concomitant]
  4. LASIX (FUROSEMIDE) [Concomitant]
  5. CARDIZEM (DILTIAZEM HYDROCHLORIDE) (TABLETS) [Concomitant]
  6. ASPIRIN (ACETYLSALICYLIC ACID) [Concomitant]
  7. CATAPRES (CLONIDINE) [Concomitant]
  8. CRESTOR (ROSUVASTATIN) [Concomitant]
  9. FLUTICASONE (FLUTICASONE) [Concomitant]
  10. FUROSEMIDE (FUROSEMIDE) [Concomitant]
  11. LAMISIL (TERBINAFINE HYDROICHLORIDE) [Concomitant]
  12. METOPROLOL (METOPROLOL) [Concomitant]
  13. NITROGLYCERIN (GLYCERYL TRINITRAETE) [Concomitant]
  14. PLAVIX (CLOPIDOGREL SULFATE) [Concomitant]
  15. REQUIP (ROPINIROLE  HYDROCHLORIDE) [Concomitant]
  16. HEPARIN (HEPARIN) [Concomitant]
  17. ACTOS (PIOGLITAZONE) [Concomitant]
  18. HYDROCHLOROTHIAZIDE (HYDROCHLOROTHIAZIDE) [Concomitant]
  19. ADVAIR (SERETIDE MITE) [Concomitant]
  20. NIFEDIPINE (NIFEDIPINE) (NIFEDIPINE) [Concomitant]
  21. DIOVAN (AMLODIPINE W/VALSARTAN) [Concomitant]
  22. DEXAMETHASONE (DEXAMETHASONE) [Concomitant]
  23. POTASSIUM CHLORIDE (POTASSIUM CHLORIDE) [Concomitant]

REACTIONS (1)
  - Renal failure [None]
